FAERS Safety Report 13627074 (Version 1)
Quarter: 2017Q2

REPORT INFORMATION
  Report Type: Spontaneous
  Country: US (occurrence: US)
  Receive Date: 20170607
  Receipt Date: 20170607
  Transmission Date: 20170830
  Serious: No
  Sender: FDA-Public Use
  Company Number: None

PATIENT
  Age: 40 Year
  Sex: Female

DRUGS (3)
  1. PERMETHERIN [Suspect]
     Active Substance: PERMETHRIN
     Indication: ACARODERMATITIS
     Route: 061
  2. FISH OIL [Concomitant]
     Active Substance: FISH OIL
  3. CITAMIN C [Concomitant]

REACTIONS (2)
  - Skin infection [None]
  - Scar [None]

NARRATIVE: CASE EVENT DATE: 20161215
